FAERS Safety Report 16120594 (Version 1)
Quarter: 2019Q1

REPORT INFORMATION
  Report Type: Spontaneous
  Country: FR (occurrence: FR)
  Receive Date: 20190327
  Receipt Date: 20190327
  Transmission Date: 20190418
  Serious: Yes (Hospitalization)
  Sender: FDA-Public Use
  Company Number: FR-ROCHE-2286284

PATIENT
  Age: 48 Year
  Sex: Female

DRUGS (2)
  1. ZESTRIL [Concomitant]
     Active Substance: LISINOPRIL
     Route: 048
  2. KADCYLA [Suspect]
     Active Substance: ADO-TRASTUZUMAB EMTANSINE
     Indication: BREAST CANCER
     Route: 042
     Dates: start: 201802, end: 201804

REACTIONS (3)
  - Varices oesophageal [Recovering/Resolving]
  - Venoocclusive liver disease [Recovering/Resolving]
  - Portal hypertension [Recovering/Resolving]

NARRATIVE: CASE EVENT DATE: 201803
